FAERS Safety Report 25680478 (Version 1)
Quarter: 2025Q3

REPORT INFORMATION
  Report Type: Spontaneous
  Country: US (occurrence: US)
  Receive Date: 20250814
  Receipt Date: 20250814
  Transmission Date: 20251020
  Serious: Yes (Life-Threatening, Hospitalization)
  Sender: MYLAN
  Company Number: US-MYLANLABS-2025M1068104

PATIENT
  Age: 19 Year
  Sex: Female

DRUGS (32)
  1. AMLODIPINE [Suspect]
     Active Substance: AMLODIPINE BESYLATE
     Indication: Product used for unknown indication
  2. AMLODIPINE [Suspect]
     Active Substance: AMLODIPINE BESYLATE
     Route: 048
  3. AMLODIPINE [Suspect]
     Active Substance: AMLODIPINE BESYLATE
     Route: 048
  4. AMLODIPINE [Suspect]
     Active Substance: AMLODIPINE BESYLATE
  5. NOREPINEPHRINE BITARTRATE [Suspect]
     Active Substance: NOREPINEPHRINE BITARTRATE
     Indication: Hypotension
  6. NOREPINEPHRINE BITARTRATE [Suspect]
     Active Substance: NOREPINEPHRINE BITARTRATE
     Route: 042
  7. NOREPINEPHRINE BITARTRATE [Suspect]
     Active Substance: NOREPINEPHRINE BITARTRATE
     Route: 042
  8. NOREPINEPHRINE BITARTRATE [Suspect]
     Active Substance: NOREPINEPHRINE BITARTRATE
  9. EPINEPHRINE [Suspect]
     Active Substance: EPINEPHRINE
     Indication: Hypotension
  10. EPINEPHRINE [Suspect]
     Active Substance: EPINEPHRINE
     Route: 065
  11. EPINEPHRINE [Suspect]
     Active Substance: EPINEPHRINE
     Route: 065
  12. EPINEPHRINE [Suspect]
     Active Substance: EPINEPHRINE
  13. HYDROXYZINE [Suspect]
     Active Substance: HYDROXYZINE HYDROCHLORIDE
     Indication: Product used for unknown indication
  14. HYDROXYZINE [Suspect]
     Active Substance: HYDROXYZINE HYDROCHLORIDE
     Route: 048
  15. HYDROXYZINE [Suspect]
     Active Substance: HYDROXYZINE HYDROCHLORIDE
     Route: 048
  16. HYDROXYZINE [Suspect]
     Active Substance: HYDROXYZINE HYDROCHLORIDE
  17. SOLIFENACIN [Suspect]
     Active Substance: SOLIFENACIN
     Indication: Product used for unknown indication
  18. SOLIFENACIN [Suspect]
     Active Substance: SOLIFENACIN
     Route: 048
  19. SOLIFENACIN [Suspect]
     Active Substance: SOLIFENACIN
     Route: 048
  20. SOLIFENACIN [Suspect]
     Active Substance: SOLIFENACIN
  21. CALCIUM [Suspect]
     Active Substance: CALCIUM
     Indication: Hypotension
  22. CALCIUM [Suspect]
     Active Substance: CALCIUM
     Route: 065
  23. CALCIUM [Suspect]
     Active Substance: CALCIUM
     Route: 065
  24. CALCIUM [Suspect]
     Active Substance: CALCIUM
  25. VASOPRESSIN [Suspect]
     Active Substance: VASOPRESSIN
     Indication: Hypotension
  26. VASOPRESSIN [Suspect]
     Active Substance: VASOPRESSIN
     Route: 065
  27. VASOPRESSIN [Suspect]
     Active Substance: VASOPRESSIN
     Route: 065
  28. VASOPRESSIN [Suspect]
     Active Substance: VASOPRESSIN
  29. ANGIOTENSIN II [Suspect]
     Active Substance: ANGIOTENSIN II
     Indication: Hypotension
  30. ANGIOTENSIN II [Suspect]
     Active Substance: ANGIOTENSIN II
     Route: 065
  31. ANGIOTENSIN II [Suspect]
     Active Substance: ANGIOTENSIN II
     Route: 065
  32. ANGIOTENSIN II [Suspect]
     Active Substance: ANGIOTENSIN II

REACTIONS (11)
  - Intentional overdose [Unknown]
  - Toxicity to various agents [Unknown]
  - Hypotension [Recovering/Resolving]
  - Cardiac dysfunction [Unknown]
  - Condition aggravated [Unknown]
  - Oliguria [Unknown]
  - Blood lactic acid abnormal [Unknown]
  - Cardiac failure [Unknown]
  - Drug ineffective [Unknown]
  - Somnolence [Unknown]
  - Hyperglycaemia [Unknown]
